FAERS Safety Report 15611018 (Version 1)
Quarter: 2018Q4

REPORT INFORMATION
  Report Type: Report from Study
  Country: US (occurrence: US)
  Receive Date: 20181113
  Receipt Date: 20181113
  Transmission Date: 20190205
  Serious: Yes (Hospitalization)
  Sender: FDA-Public Use
  Company Number: US-EMD SERONO-9050967

PATIENT
  Age: 58 Year
  Sex: Male

DRUGS (1)
  1. REBIF [Suspect]
     Active Substance: INTERFERON BETA-1A
     Indication: MULTIPLE SCLEROSIS
     Route: 058
     Dates: start: 20050804

REACTIONS (4)
  - Hypertension [Unknown]
  - Platelet count decreased [Unknown]
  - Renal disorder [Unknown]
  - Thrombocytopenic purpura [Unknown]

NARRATIVE: CASE EVENT DATE: 201809
